FAERS Safety Report 13710748 (Version 1)
Quarter: 2017Q3

REPORT INFORMATION
  Report Type: Spontaneous
  Country: US (occurrence: US)
  Receive Date: 20170701
  Receipt Date: 20170701
  Transmission Date: 20171127
  Serious: Yes (Disabling)
  Sender: FDA-Public Use
  Company Number: None

PATIENT
  Age: 57 Year
  Sex: Female
  Weight: 54 kg

DRUGS (1)
  1. HARVONI [Suspect]
     Active Substance: LEDIPASVIR\SOFOSBUVIR
     Indication: HEPATITIS C
     Route: 048

REACTIONS (8)
  - Visual impairment [None]
  - Fatigue [None]
  - Headache [None]
  - Muscle atrophy [None]
  - Autoimmune disorder [None]
  - Weight decreased [None]
  - Arthralgia [None]
  - Myalgia [None]
